FAERS Safety Report 6665905-X (Version None)
Quarter: 2010Q2

REPORT INFORMATION
  Report Type: 
  Country: None (occurrence: None)
  Receive Date: 20100402
  Receipt Date: 20100323
  Transmission Date: 20101027
  Serious: Yes (Hospitalization)
  Sender: FDA-Public Use
  Company Number: US-RB-005314-10

PATIENT
  Sex: Male

DRUGS (4)
  1. SUBUTEX [Suspect]
     Route: 060
     Dates: start: 20080701
  2. SUBUTEX [Suspect]
     Dosage: TAPERED FROM 32MG TO 16MG DAILY
     Route: 060
  3. SUBOXONE [Suspect]
     Route: 060
     Dates: start: 20080501, end: 20080701
  4. CYMBALTA [Suspect]
     Indication: PAIN
     Dosage: UNKNOWN DOSING DETAILS
     Route: 065
     Dates: end: 20080101

REACTIONS (2)
  - LIVER DISORDER [None]
  - POISONING [None]
